FAERS Safety Report 8365171-3 (Version None)
Quarter: 2012Q2

REPORT INFORMATION
  Report Type: 
  Country: None (occurrence: None)
  Receive Date: 20120516
  Receipt Date: 20120508
  Transmission Date: 20120825
  Serious: Yes (Life-Threatening, Hospitalization)
  Sender: FDA-Public Use
  Company Number: TR-BAXTER-2012BAX005179

PATIENT
  Age: 80 Year
  Sex: Male
  Weight: 70 kg

DRUGS (2)
  1. AVIL [Suspect]
     Indication: PREMEDICATION
  2. KIOVIG [Suspect]
     Dosage: DAY1:15G DAY2:10G
     Route: 042
     Dates: start: 20120507, end: 20120507

REACTIONS (3)
  - LOSS OF CONSCIOUSNESS [None]
  - BRAIN HYPOXIA [None]
  - RESPIRATORY ARREST [None]
